FAERS Safety Report 7817496-5 (Version None)
Quarter: 2011Q4

REPORT INFORMATION
  Report Type: 
  Country: None (occurrence: None)
  Receive Date: 20111017
  Receipt Date: 20111003
  Transmission Date: 20120403
  Serious: Yes (Other)
  Sender: FDA-Public Use
  Company Number: US-BAYER-2011-082461

PATIENT
  Age: 46 Year
  Sex: Female
  Weight: 133.79 kg

DRUGS (5)
  1. PHENTERMINE [Concomitant]
     Dosage: UNK
     Route: 048
     Dates: start: 20030101, end: 20100101
  2. YAZ [Suspect]
     Indication: CONTRACEPTION
     Dosage: UNK
     Dates: start: 20090224, end: 20090820
  3. ADVAIR DISKUS 100/50 [Concomitant]
     Dosage: UNK UNK, PRN
     Dates: start: 19980101
  4. QVAR 40 [Concomitant]
     Dosage: UNK UNK, PRN--
     Dates: start: 19980101
  5. ALBUTEROL [Concomitant]
     Dosage: UNK UNK, PRN
     Dates: start: 19980101

REACTIONS (8)
  - VOMITING [None]
  - APPETITE DISORDER [None]
  - CHOLELITHIASIS [None]
  - DIARRHOEA [None]
  - ABDOMINAL PAIN UPPER [None]
  - ABDOMINAL DISTENSION [None]
  - INJURY [None]
  - PAIN [None]
